FAERS Safety Report 25597750 (Version 1)
Quarter: 2025Q3

REPORT INFORMATION
  Report Type: Spontaneous
  Country: US (occurrence: None)
  Receive Date: 20250723
  Receipt Date: 20250723
  Transmission Date: 20251021
  Serious: No
  Sender: FDA-CTU
  Company Number: None

PATIENT

DRUGS (1)
  1. LENALIDOMIDE [Suspect]
     Active Substance: LENALIDOMIDE
     Indication: Myelodysplastic syndrome
     Dosage: FREQUENCY : DAILY;?
     Route: 048
     Dates: start: 20240510, end: 20250616

REACTIONS (4)
  - Cytopenia [None]
  - Anaemia [None]
  - Myelodysplastic syndrome [None]
  - Myelodysplastic syndrome with excess blasts [None]

NARRATIVE: CASE EVENT DATE: 20250616
